FAERS Safety Report 17540909 (Version 1)
Quarter: 2020Q1

REPORT INFORMATION
  Report Type: Spontaneous
  Country: US (occurrence: US)
  Receive Date: 20200313
  Receipt Date: 20200313
  Transmission Date: 20200409
  Serious: Yes (Other)
  Sender: FDA-Public Use
  Company Number: US-TARO-2019TAR00219

PATIENT
  Age: 58 Year
  Sex: Male

DRUGS (1)
  1. LAMOTRIGINE TABLETS 200 MG [Suspect]
     Active Substance: LAMOTRIGINE
     Dosage: UNK

REACTIONS (2)
  - Gluten sensitivity [Not Recovered/Not Resolved]
  - Coeliac disease [Not Recovered/Not Resolved]
